FAERS Safety Report 9822474 (Version 1)
Quarter: 2014Q1

REPORT INFORMATION
  Report Type: Spontaneous
  Country: US (occurrence: US)
  Receive Date: 20140116
  Receipt Date: 20140116
  Transmission Date: 20141002
  Serious: No
  Sender: FDA-Public Use
  Company Number: US-ORAPHARMA-QUINORA-2012-023

PATIENT
  Sex: 0

DRUGS (1)
  1. ARESTIN [Suspect]
     Indication: PERIODONTAL DISEASE
     Dosage: 4 DF, ONE TIME DOSE
     Route: 048
     Dates: start: 20120321, end: 20120321

REACTIONS (4)
  - Cough [Not Recovered/Not Resolved]
  - Lung disorder [Not Recovered/Not Resolved]
  - Asthenia [Not Recovered/Not Resolved]
  - Influenza like illness [Not Recovered/Not Resolved]
